FAERS Safety Report 21049215 (Version 1)
Quarter: 2022Q3

REPORT INFORMATION
  Report Type: Spontaneous
  Country: US (occurrence: US)
  Receive Date: 20220706
  Receipt Date: 20220706
  Transmission Date: 20221026
  Serious: No
  Sender: FDA-Public Use
  Company Number: US-PFIZER INC-202200925610

PATIENT

DRUGS (1)
  1. PAXLOVID [Suspect]
     Active Substance: NIRMATRELVIR\RITONAVIR
     Indication: COVID-19 treatment
     Dosage: UNK
     Dates: start: 20220630, end: 20220701

REACTIONS (5)
  - Abdominal distension [Unknown]
  - Abdominal pain [Unknown]
  - Sleep disorder [Unknown]
  - Malaise [Unknown]
  - Ear disorder [Unknown]

NARRATIVE: CASE EVENT DATE: 20220101
